FAERS Safety Report 7762627-9 (Version None)
Quarter: 2011Q3

REPORT INFORMATION
  Report Type: 
  Country: None (occurrence: None)
  Receive Date: 20110920
  Receipt Date: 20110915
  Transmission Date: 20111222
  Serious: Yes (Death, Hospitalization)
  Sender: FDA-Public Use
  Company Number: GB-VIIV HEALTHCARE LIMITED-B0745612A

PATIENT
  Age: 63 Year
  Sex: Female

DRUGS (12)
  1. FERROUS SULFATE TAB [Concomitant]
  2. CALCIUM CARBONATE [Concomitant]
  3. NEVIRAPINE [Suspect]
     Indication: HIV INFECTION
     Dates: start: 20051201
  4. REYATAZ [Suspect]
     Indication: HIV INFECTION
  5. RITONAVIR [Suspect]
     Indication: HIV INFECTION
  6. METFORMIN HCL [Concomitant]
  7. COMBIVIR [Suspect]
     Indication: HIV INFECTION
     Dates: start: 20051201
  8. MARAVIROC [Concomitant]
  9. RALTEGRAVIR [Concomitant]
  10. ASPIRIN [Concomitant]
  11. PRAVASTATIN [Concomitant]
  12. LAMOTRIGINE [Concomitant]

REACTIONS (1)
  - HEPATIC STEATOSIS [None]
